FAERS Safety Report 13472646 (Version 1)
Quarter: 2017Q2

REPORT INFORMATION
  Report Type: Spontaneous
  Country: US (occurrence: US)
  Receive Date: 20170424
  Receipt Date: 20170424
  Transmission Date: 20170830
  Serious: Yes (Other)
  Sender: FDA-Public Use
  Company Number: US-CHARTWELL PHARMA-1065757

PATIENT
  Age: 66 Year
  Sex: Female

DRUGS (8)
  1. LEVOTHYROXINE. [Concomitant]
     Active Substance: LEVOTHYROXINE
  2. PREMARIN [Concomitant]
     Active Substance: ESTROGENS, CONJUGATED
  3. DULOXETINE. [Concomitant]
     Active Substance: DULOXETINE
  4. PANTOPRAZOLE [Concomitant]
     Active Substance: PANTOPRAZOLE
  5. ASPIRIN. [Concomitant]
     Active Substance: ASPIRIN
  6. LABETALOL HYDROCHLORIDE AND HYDROCHLOROTHIAZIDE [Concomitant]
  7. DOXYCYCLINE HYCLATE. [Suspect]
     Active Substance: DOXYCYCLINE HYCLATE
     Indication: SKIN ULCER
     Route: 048
     Dates: start: 2017
  8. BIOTIN [Concomitant]
     Active Substance: BIOTIN

REACTIONS (4)
  - Heart rate abnormal [Unknown]
  - Oxygen saturation decreased [Unknown]
  - Nausea [Unknown]
  - Mood swings [Unknown]
